FAERS Safety Report 7129052-5 (Version None)
Quarter: 2010Q4

REPORT INFORMATION
  Report Type: 
  Country: None (occurrence: None)
  Receive Date: 20101130
  Receipt Date: 20101021
  Transmission Date: 20110411
  Serious: Yes (Hospitalization, Other)
  Sender: FDA-Public Use
  Company Number: US-AMGEN-KDL431415

PATIENT

DRUGS (36)
  1. ENBREL [Suspect]
     Indication: ANKYLOSING SPONDYLITIS
     Dosage: 50 MG, QWK
     Route: 058
     Dates: start: 20100201
  2. METHOTREXATE [Concomitant]
     Dosage: 15 MG, QWK
     Dates: start: 20091101
  3. PREDNISONE [Concomitant]
     Dosage: 10 MG, Q12H
  4. LISINOPRIL                         /00894002/ [Concomitant]
     Indication: HYPERTENSION
  5. ULORIC [Concomitant]
     Indication: HYPERURICAEMIA
     Dosage: 80 MG, QD
  6. COUMADIN [Concomitant]
     Indication: FACTOR V DEFICIENCY
     Dosage: 3 MG, QOD
     Dates: start: 20100118, end: 20100317
  7. COUMADIN [Concomitant]
     Dosage: 4 MG, QOD
     Dates: start: 20100118, end: 20100317
  8. COUMADIN [Concomitant]
     Dosage: 5 MG, QD
     Dates: start: 20100317, end: 20100423
  9. COUMADIN [Concomitant]
     Dosage: 7.5 MG, QD
     Dates: start: 20100423
  10. XANAX [Concomitant]
     Indication: DEPRESSION
     Dosage: 1 MG, Q8H
  11. PERCOCET [Concomitant]
     Dosage: UNK UNK, Q4H
  12. LASIX [Concomitant]
     Dosage: 40 UNK, QD
  13. LANTUS [Concomitant]
     Indication: DIABETES MELLITUS
     Dosage: 10 UNIT, Q8H
     Route: 058
  14. NOVOLOG [Concomitant]
     Indication: DIABETES MELLITUS
     Dosage: 5 UNIT, Q8H
     Route: 058
  15. METFORMIN [Concomitant]
     Indication: DIABETES MELLITUS
     Dosage: 500 MG, Q12H
     Route: 048
  16. NORCO [Concomitant]
     Indication: PAIN
     Dosage: 10 MG, UNK
     Route: 048
  17. ALLOPURINOL [Concomitant]
     Indication: HYPERURICAEMIA
     Dosage: 300 MG, QD
     Route: 048
  18. ALLOPURINOL [Concomitant]
     Dosage: 150 MG, UNK
  19. CELEXA [Concomitant]
     Dosage: 40 MG, QD
     Route: 048
  20. CELEXA [Concomitant]
     Dosage: 20 MG, UNK
     Route: 048
  21. LIDOCAINE                          /00033402/ [Concomitant]
     Dosage: UNK UNK, Q12H
     Route: 062
  22. NYSTATIN [Concomitant]
     Dosage: UNK UNK, PRN
  23. PREDNISOLONE [Concomitant]
     Route: 047
  24. ULTRAM [Concomitant]
     Indication: PAIN
     Dosage: 50 MG, Q6H
  25. COREG [Concomitant]
     Indication: HYPERTENSION
     Dosage: 25 MG, BID
     Route: 048
  26. ALTACE [Concomitant]
     Indication: HYPERTENSION
     Dosage: 10 MG, QD
     Route: 048
  27. CLONIDINE HCL [Concomitant]
  28. POTASSIUM CHLORIDE [Concomitant]
     Dosage: 20 MEQ, QD
  29. POTASSIUM CHLORIDE [Concomitant]
     Dosage: 40 MEQ, UNK
  30. LYRICA [Concomitant]
     Dosage: 75 MG, Q12H
     Route: 048
  31. AMOXICILLIN [Concomitant]
     Dosage: 500 MG, Q12H
     Route: 048
  32. FOLIC ACID [Concomitant]
     Dosage: 1 MG, QD
     Route: 048
  33. PROMETHAZINE [Concomitant]
     Dosage: 25 MG, PRN
     Route: 048
  34. OXYCODONE [Concomitant]
     Indication: PAIN
     Dosage: 30 MG, Q6H
  35. VENTOLIN HFA [Concomitant]
     Dosage: 90 A?G, Q6H
  36. KEFLEX [Concomitant]
     Dosage: 500 MG, Q6H
     Route: 048

REACTIONS (42)
  - ABSCESS LIMB [None]
  - ALOPECIA [None]
  - ANAEMIA [None]
  - ANKYLOSING SPONDYLITIS [None]
  - ASTHENIA [None]
  - BLOOD PRESSURE INCREASED [None]
  - BONE DISORDER [None]
  - CELLULITIS [None]
  - COLITIS ISCHAEMIC [None]
  - CONFUSIONAL STATE [None]
  - CONVERSION DISORDER [None]
  - CONVULSION [None]
  - DEHYDRATION [None]
  - DEPRESSION [None]
  - DIABETES MELLITUS INADEQUATE CONTROL [None]
  - DYSARTHRIA [None]
  - ECCHYMOSIS [None]
  - HEMIPARESIS [None]
  - HERPES ZOSTER [None]
  - INCREASED TENDENCY TO BRUISE [None]
  - INTERNATIONAL NORMALISED RATIO DECREASED [None]
  - LETHARGY [None]
  - LOSS OF CONSCIOUSNESS [None]
  - MACULAR OEDEMA [None]
  - NARCOTIC INTOXICATION [None]
  - NEUROPATHY PERIPHERAL [None]
  - OEDEMA [None]
  - ORTHOSTATIC HYPOTENSION [None]
  - PAIN [None]
  - PAROTITIS [None]
  - PETECHIAE [None]
  - PHARYNGITIS [None]
  - PULMONARY EMBOLISM [None]
  - PYREXIA [None]
  - RESPIRATORY ACIDOSIS [None]
  - ROTATOR CUFF SYNDROME [None]
  - SIALOADENITIS [None]
  - SKIN HAEMORRHAGE [None]
  - SKIN LESION [None]
  - TENDON DISORDER [None]
  - THROMBOSIS [None]
  - VISUAL IMPAIRMENT [None]
